FAERS Safety Report 5631043-8 (Version None)
Quarter: 2008Q1

REPORT INFORMATION
  Report Type: 
  Country: None (occurrence: None)
  Receive Date: 20080131
  Receipt Date: 20071116
  Transmission Date: 20080703
  Serious: No
  Sender: FDA-Public Use
  Company Number: 163-21880-07111050

PATIENT
  Age: 66 Year
  Sex: Male

DRUGS (3)
  1. REVLIMID [Suspect]
     Indication: GAMMOPATHY
     Dosage: 10 , 25 MG, DAILY X 21 DAYS, ORAL
     Route: 048
     Dates: start: 20070404, end: 20070701
  2. REVLIMID [Suspect]
     Indication: GAMMOPATHY
     Dosage: 10 , 25 MG, DAILY X 21 DAYS, ORAL
     Route: 048
     Dates: start: 20070724
  3. DEXAMETHASONE TAB [Concomitant]

REACTIONS (1)
  - JAW DISORDER [None]
